FAERS Safety Report 16410226 (Version 1)
Quarter: 2019Q3

REPORT INFORMATION
  Report Type: Spontaneous
  Country: US (occurrence: US)
  Receive Date: 20190607
  Receipt Date: 20190607
  Transmission Date: 20191004
  Serious: Yes (Hospitalization)
  Sender: FDA-Public Use
  Company Number: None

PATIENT
  Age: 70 Year
  Sex: Female
  Weight: 87.3 kg

DRUGS (1)
  1. CARBAMAZEPINE. [Suspect]
     Active Substance: CARBAMAZEPINE
     Indication: BIPOLAR DISORDER
     Route: 048
     Dates: start: 20190523, end: 20190527

REACTIONS (7)
  - Lethargy [None]
  - Hepatic enzyme increased [None]
  - Peripheral swelling [None]
  - Fall [None]
  - Pyrexia [None]
  - Rash [None]
  - Lip swelling [None]

NARRATIVE: CASE EVENT DATE: 20190527
